FAERS Safety Report 20080233 (Version 1)
Quarter: 2021Q4

REPORT INFORMATION
  Report Type: Spontaneous
  Country: US (occurrence: US)
  Receive Date: 20211117
  Receipt Date: 20211117
  Transmission Date: 20220304
  Serious: Yes (Hospitalization)
  Sender: FDA-Public Use
  Company Number: US-MYLANLABS-2021M1084449

PATIENT
  Age: 58 Year
  Sex: Male

DRUGS (10)
  1. APIXABAN [Suspect]
     Active Substance: APIXABAN
     Indication: Atrial fibrillation
     Dosage: UNK
     Route: 065
  2. APIXABAN [Suspect]
     Active Substance: APIXABAN
     Indication: Anticoagulant therapy
  3. ASPIRIN [Concomitant]
     Active Substance: ASPIRIN
     Indication: Drug therapy
     Dosage: UNK
     Route: 065
  4. TICAGRELOR [Concomitant]
     Active Substance: TICAGRELOR
     Indication: Drug therapy
     Dosage: UNK
     Route: 065
  5. METOPROLOL SUCCINATE [Concomitant]
     Active Substance: METOPROLOL SUCCINATE
     Indication: Drug therapy
     Dosage: UNK
     Route: 065
  6. LOSARTAN [Concomitant]
     Active Substance: LOSARTAN
     Indication: Drug therapy
     Dosage: UNK
     Route: 065
  7. NIFEDIPINE [Concomitant]
     Active Substance: NIFEDIPINE
     Indication: Drug therapy
     Dosage: UNK
     Route: 065
  8. AMIODARONE [Concomitant]
     Active Substance: AMIODARONE
     Indication: Drug therapy
     Dosage: UNK
     Route: 065
  9. SEVELAMER [Concomitant]
     Active Substance: SEVELAMER
     Indication: Drug therapy
     Dosage: UNK
     Route: 065
  10. PANTOPRAZOLE [Concomitant]
     Active Substance: PANTOPRAZOLE
     Indication: Drug therapy
     Dosage: UNK
     Route: 065

REACTIONS (1)
  - Cutaneous vasculitis [Unknown]
